FAERS Safety Report 15005370 (Version 1)
Quarter: 2018Q2

REPORT INFORMATION
  Report Type: Report from Study
  Country: CZ (occurrence: CZ)
  Receive Date: 20180613
  Receipt Date: 20180613
  Transmission Date: 20180711
  Serious: Yes (Other)
  Sender: FDA-Public Use
  Company Number: CZ-TEVA-2018-CZ-903925

PATIENT
  Age: 39 Year
  Sex: Male

DRUGS (3)
  1. COPAXONE [Suspect]
     Active Substance: GLATIRAMER ACETATE
     Indication: MULTIPLE SCLEROSIS
     Route: 058
     Dates: start: 20171001
  2. VENLAFAXINE [Concomitant]
     Active Substance: VENLAFAXINE HYDROCHLORIDE
     Route: 065
  3. NEURONTIN [Concomitant]
     Active Substance: GABAPENTIN
     Route: 065

REACTIONS (7)
  - Erythema [Recovered/Resolved]
  - Body temperature increased [Recovered/Resolved]
  - Chills [Recovered/Resolved]
  - Rash [Recovered/Resolved]
  - Multiple sclerosis [Not Recovered/Not Resolved]
  - Immediate post-injection reaction [Recovered/Resolved]
  - Dyspnoea [Recovered/Resolved]

NARRATIVE: CASE EVENT DATE: 2018
